FAERS Safety Report 15735855 (Version 1)
Quarter: 2018Q4

REPORT INFORMATION
  Report Type: Spontaneous
  Country: JP (occurrence: JP)
  Receive Date: 20181218
  Receipt Date: 20181218
  Transmission Date: 20190205
  Serious: Yes (Hospitalization)
  Sender: FDA-Public Use
  Company Number: JP-ACELLA PHARMACEUTICALS, LLC-2060315

PATIENT
  Age: 41 Year
  Sex: Male

DRUGS (5)
  1. DIHUANG [Suspect]
     Active Substance: HERBALS
  2. HYDROCODONE BITARTRATE AND CHLORPHENIRAMINE MALEATE [Suspect]
     Active Substance: CHLORPHENIRAMINE MALEATE\HYDROCODONE BITARTRATE
     Indication: NASOPHARYNGITIS
  3. EPHEDRINE. [Suspect]
     Active Substance: EPHEDRINE
  4. ACETAMINOPHEN. [Suspect]
     Active Substance: ACETAMINOPHEN
  5. NIU-HUANG [Suspect]
     Active Substance: BOS TAURUS GALLSTONE

REACTIONS (2)
  - Dyspnoea [Recovered/Resolved]
  - Haemoptysis [Recovered/Resolved]
